FAERS Safety Report 11112017 (Version 3)
Quarter: 2017Q3

REPORT INFORMATION
  Report Type: Spontaneous
  Country: JP (occurrence: JP)
  Receive Date: 20150514
  Receipt Date: 20170927
  Transmission Date: 20171127
  Serious: Yes (Death, Hospitalization, Other)
  Sender: FDA-Public Use
  Company Number: JP-ROCHE-1576605

PATIENT
  Age: 61 Year
  Sex: Female
  Weight: 41 kg

DRUGS (5)
  1. ALIMTA [Concomitant]
     Active Substance: PEMETREXED DISODIUM
     Indication: LUNG ADENOCARCINOMA
     Route: 041
     Dates: start: 20130409, end: 20140121
  2. THYRADIN [Concomitant]
     Active Substance: LEVOTHYROXINE
     Indication: SPHENOID SINUS OPERATION
     Route: 048
     Dates: start: 20110815
  3. AVASTIN [Suspect]
     Active Substance: BEVACIZUMAB
     Indication: LUNG ADENOCARCINOMA
     Route: 041
     Dates: start: 20130409, end: 20140121
  4. CORTRIL [Concomitant]
     Active Substance: HYDROCORTISONE
     Indication: SPHENOID SINUS OPERATION
     Route: 048
     Dates: start: 20110811
  5. CISPLATIN. [Concomitant]
     Active Substance: CISPLATIN
     Indication: LUNG ADENOCARCINOMA
     Route: 041
     Dates: start: 20130409, end: 20130701

REACTIONS (4)
  - Impaired healing [Unknown]
  - Pneumocephalus [Recovered/Resolved]
  - Cerebrospinal fluid leakage [Recovered/Resolved]
  - Lung adenocarcinoma [Fatal]

NARRATIVE: CASE EVENT DATE: 20140127
